FAERS Safety Report 10086522 (Version 1)
Quarter: 2014Q2

REPORT INFORMATION
  Report Type: Spontaneous
  Country: US (occurrence: US)
  Receive Date: 20140418
  Receipt Date: 20140418
  Transmission Date: 20141212
  Serious: No
  Sender: FDA-Public Use
  Company Number: US-PFIZER INC-2014108002

PATIENT
  Age: 60 Year
  Sex: Male
  Weight: 77.1 kg

DRUGS (8)
  1. XELJANZ [Suspect]
     Indication: RHEUMATOID ARTHRITIS
     Dosage: 5 MG, 2X/DAY
     Route: 048
  2. HUMULIN 50/50 [Concomitant]
     Dosage: UNK
  3. CENTRUM [Concomitant]
     Dosage: UNK
  4. SINGULAIR [Concomitant]
     Dosage: 5 MG, UNK
  5. CHLOROQUINE [Concomitant]
     Dosage: 250 MG, UNK
  6. NOVOLOG [Concomitant]
     Dosage: UNK
  7. B COMPLEX [Concomitant]
     Dosage: UNK
  8. VITAMIN C [Concomitant]
     Dosage: 500 MG, UNK

REACTIONS (1)
  - Musculoskeletal stiffness [Unknown]
